FAERS Safety Report 25778982 (Version 1)
Quarter: 2025Q3

REPORT INFORMATION
  Report Type: Report from Study
  Country: CA (occurrence: CA)
  Receive Date: 20250909
  Receipt Date: 20250909
  Transmission Date: 20251020
  Serious: Yes (Hospitalization, Other)
  Sender: ABBVIE
  Company Number: CA-ABBVIE-6422893

PATIENT
  Age: 57 Year
  Sex: Male

DRUGS (1)
  1. RINVOQ [Suspect]
     Active Substance: UPADACITINIB
     Indication: Psoriatic arthropathy
     Route: 048

REACTIONS (5)
  - Hospitalisation [Unknown]
  - Product tampering [Unknown]
  - Malaise [Unknown]
  - Blood test abnormal [Unknown]
  - Poisoning [Unknown]

NARRATIVE: CASE EVENT DATE: 20250701
